FAERS Safety Report 6170854-X (Version None)
Quarter: 2009Q2

REPORT INFORMATION
  Report Type: 
  Country: None (occurrence: None)
  Receive Date: 20090427
  Receipt Date: 20090414
  Transmission Date: 20091009
  Serious: Yes (Hospitalization)
  Sender: FDA-Public Use
  Company Number: ADE# 09-050DPR

PATIENT
  Age: 64 Year
  Sex: Male

DRUGS (6)
  1. DIGOXIN [Suspect]
     Dates: end: 20090215
  2. MECLIZINE [Concomitant]
  3. FUROSEMIDE [Concomitant]
  4. DOXAZOSIN MESYLATE [Concomitant]
  5. RANITIDINE [Concomitant]
  6. ALLOPURINOL [Concomitant]

REACTIONS (8)
  - DIZZINESS [None]
  - FALL [None]
  - FEELING ABNORMAL [None]
  - GAIT DISTURBANCE [None]
  - HALLUCINATION [None]
  - NO THERAPEUTIC RESPONSE [None]
  - UNEVALUABLE EVENT [None]
  - VERTIGO [None]
